FAERS Safety Report 15674132 (Version 1)
Quarter: 2018Q4

REPORT INFORMATION
  Report Type: Report from Study
  Country: US (occurrence: US)
  Receive Date: 20181130
  Receipt Date: 20181130
  Transmission Date: 20190205
  Serious: No
  Sender: FDA-Public Use
  Company Number: PHEH2018US049549

PATIENT
  Age: 8 Year
  Sex: Male

DRUGS (1)
  1. OMNITROPE [Suspect]
     Active Substance: SOMATROPIN
     Indication: HYPOPITUITARISM
     Dosage: 1 MG, UNK
     Route: 058
     Dates: start: 20180930, end: 20181120

REACTIONS (2)
  - Rash generalised [Unknown]
  - Viral infection [Unknown]

NARRATIVE: CASE EVENT DATE: 20181115
